FAERS Safety Report 24915009 (Version 1)
Quarter: 2025Q1

REPORT INFORMATION
  Report Type: Spontaneous
  Country: CA (occurrence: CA)
  Receive Date: 20250203
  Receipt Date: 20250203
  Transmission Date: 20250408
  Serious: Yes (Life-Threatening, Hospitalization)
  Sender: EMD SERONO INC
  Company Number: CA-Merck Healthcare KGaA-2025005314

PATIENT
  Age: 81 Year
  Sex: Female
  Weight: 54 kg

DRUGS (1)
  1. BAVENCIO [Suspect]
     Active Substance: AVELUMAB
     Indication: Product used for unknown indication

REACTIONS (4)
  - Hypoxia [Recovering/Resolving]
  - Mouth swelling [Recovering/Resolving]
  - Wheezing [Recovering/Resolving]
  - Endotracheal intubation [Recovering/Resolving]
